FAERS Safety Report 12055739 (Version 2)
Quarter: 2016Q1

REPORT INFORMATION
  Report Type: Report from Study
  Country: FR (occurrence: FR)
  Receive Date: 20160209
  Receipt Date: 20160217
  Transmission Date: 20160526
  Serious: Yes (Death, Other)
  Sender: FDA-Public Use
  Company Number: FR-BRISTOL-MYERS SQUIBB COMPANY-21258611

PATIENT
  Age: 10 Year
  Sex: Male

DRUGS (1)
  1. NIVOLUMAB [Suspect]
     Active Substance: NIVOLUMAB
     Indication: GLIOBLASTOMA
     Dosage: 90 MG  LAST INFUSION 03SEP14
     Route: 042
     Dates: start: 20140624, end: 20140903

REACTIONS (6)
  - Coma [Fatal]
  - General physical health deterioration [Unknown]
  - Seizure [Unknown]
  - Respiratory arrest [Unknown]
  - Extravasation [Unknown]
  - Fatigue [Unknown]

NARRATIVE: CASE EVENT DATE: 2014
